FAERS Safety Report 13087745 (Version 1)
Quarter: 2017Q1

REPORT INFORMATION
  Report Type: Spontaneous
  Country: US (occurrence: US)
  Receive Date: 20170104
  Receipt Date: 20170104
  Transmission Date: 20170428
  Serious: Yes (Other)
  Sender: FDA-Public Use
  Company Number: None

PATIENT
  Age: 72 Year
  Sex: Female

DRUGS (1)
  1. LAMOTRIGINE 200MG TAB CIPLA [Suspect]
     Active Substance: LAMOTRIGINE
     Indication: SEIZURE
     Dates: start: 2016

REACTIONS (2)
  - Seizure [None]
  - Drug dispensing error [None]

NARRATIVE: CASE EVENT DATE: 20160102
